FAERS Safety Report 6598759-0 (Version None)
Quarter: 2010Q1

REPORT INFORMATION
  Report Type: 
  Country: None (occurrence: None)
  Receive Date: 20100224
  Receipt Date: 20100212
  Transmission Date: 20100710
  Serious: Yes (Death, Hospitalization)
  Sender: FDA-Public Use
  Company Number: JP-PFIZER INC-2009311850

PATIENT
  Age: 40 Year
  Sex: Male

DRUGS (11)
  1. GENOTROPIN [Suspect]
     Indication: HYPOPITUITARISM
     Dosage: 0.3 MG, 1X/DAY
     Route: 058
     Dates: start: 20091109, end: 20091201
  2. CONTOL [Concomitant]
     Dosage: UNK
  3. DESMOPRESSIN [Concomitant]
     Indication: HYPOPITUITARISM
     Dosage: UNK
     Route: 045
     Dates: start: 20080608, end: 20091211
  4. CORTRIL [Concomitant]
     Indication: HYPOPITUITARISM
     Dosage: UNK
     Route: 048
     Dates: start: 20080608, end: 20091211
  5. THYRADIN S [Concomitant]
     Indication: HYPOPITUITARISM
     Dosage: UNK
     Route: 048
     Dates: start: 20080608, end: 20091211
  6. TORASEMIDE [Concomitant]
     Indication: CARDIAC FAILURE
     Dosage: UNK
     Route: 048
     Dates: start: 20080608, end: 20091211
  7. LIPITOR [Concomitant]
     Indication: HYPERCHOLESTEROLAEMIA
     Dosage: UNK
     Route: 048
     Dates: start: 20080608, end: 20091211
  8. ITOROL [Concomitant]
     Indication: ANGINA PECTORIS
     Dosage: UNK
     Route: 048
     Dates: start: 20080608, end: 20091211
  9. ZANTAC [Concomitant]
     Indication: HYPERURICAEMIA
     Dosage: UNK
     Route: 048
     Dates: start: 20080608, end: 20091211
  10. OXYGEN [Concomitant]
     Dosage: 6 L, /MIN
     Dates: start: 20080608
  11. OXYGEN [Concomitant]
     Dosage: 3.5 L, /MIN
     Dates: start: 20090501

REACTIONS (2)
  - DEATH [None]
  - RESPIRATORY FAILURE [None]
